FAERS Safety Report 8104798-0 (Version None)
Quarter: 2012Q1

REPORT INFORMATION
  Report Type: 
  Country: None (occurrence: None)
  Receive Date: 20120130
  Receipt Date: 20120119
  Transmission Date: 20120608
  Serious: Yes (Hospitalization, Other)
  Sender: FDA-Public Use
  Company Number: FR-PFIZER INC-2011269014

PATIENT
  Age: 51 Year
  Sex: Female

DRUGS (2)
  1. SOLU-MEDROL [Suspect]
     Indication: MULTIPLE SCLEROSIS
     Dosage: 1 DOSAGE FORM PER CYCLE
     Route: 042
     Dates: start: 20110823
  2. NOROXIN [Concomitant]
     Indication: MULTIPLE SCLEROSIS
     Dosage: 400 MG, 2X/DAY EVERY 4 MONTHS
     Route: 048
     Dates: start: 20090101

REACTIONS (4)
  - RASH [None]
  - CHEST PAIN [None]
  - URTICARIA [None]
  - PRURITUS [None]
